FAERS Safety Report 22285548 (Version 2)
Quarter: 2023Q2

REPORT INFORMATION
  Report Type: Spontaneous
  Country: US (occurrence: US)
  Receive Date: 20230504
  Receipt Date: 20230605
  Transmission Date: 20230721
  Serious: No
  Sender: FDA-Public Use
  Company Number: US-009507513-2305USA000635

PATIENT
  Age: 42 Year
  Sex: Female

DRUGS (1)
  1. KEYTRUDA [Suspect]
     Active Substance: PEMBROLIZUMAB
     Indication: Hodgkin^s disease
     Dosage: 400 MILLIGRAM, EVERY 6 WEEKS
     Route: 042

REACTIONS (2)
  - Product use issue [Unknown]
  - No adverse event [Unknown]
